FAERS Safety Report 19826805 (Version 1)
Quarter: 2021Q3

REPORT INFORMATION
  Report Type: Spontaneous
  Country: US (occurrence: US)
  Receive Date: 20210913
  Receipt Date: 20210913
  Transmission Date: 20211014
  Serious: Yes (Other)
  Sender: FDA-Public Use
  Company Number: None

PATIENT
  Age: 78 Year
  Sex: Female

DRUGS (12)
  1. LEVALBUTEROL. [Concomitant]
     Active Substance: LEVALBUTEROL
  2. OXPENEX [Concomitant]
  3. VITAMIN B12 [Concomitant]
     Active Substance: CYANOCOBALAMIN
  4. SPIRIVA [Concomitant]
     Active Substance: TIOTROPIUM BROMIDE MONOHYDRATE
  5. ALPRAZOLAM. [Concomitant]
     Active Substance: ALPRAZOLAM
  6. TURMERIC [Concomitant]
     Active Substance: HERBALS\TURMERIC
  7. SODIUM CHLORIDE. [Concomitant]
     Active Substance: SODIUM CHLORIDE
  8. XYGEN [Concomitant]
  9. WHOLE PSYLLIUM HUSKS [Concomitant]
  10. TIMOLOL MALEATE OPHTHALMIC GEL FORMING SOLUTION, 0.5% [Suspect]
     Active Substance: TIMOLOL MALEATE
     Indication: GLAUCOMA
     Dosage: ?          QUANTITY:1 DROP 2X A DAYEYE;?
     Route: 031
     Dates: start: 20210629
  11. FLOVENT [Concomitant]
     Active Substance: FLUTICASONE PROPIONATE
  12. VITAMIN D2 [Concomitant]
     Active Substance: ERGOCALCIFEROL

REACTIONS (3)
  - Eye pain [None]
  - Lacrimation increased [None]
  - Visual impairment [None]

NARRATIVE: CASE EVENT DATE: 202101
